FAERS Safety Report 8633189 (Version 6)
Quarter: 2013Q4

REPORT INFORMATION
  Report Type: Spontaneous
  Country: US (occurrence: US)
  Receive Date: 20120612
  Receipt Date: 20131108
  Transmission Date: 20140711
  Serious: Yes (Hospitalization)
  Sender: FDA-Public Use
  Company Number: US-009507513-2012SP030917

PATIENT
  Age: 68 Year
  Sex: Male
  Weight: 73.16 kg

DRUGS (2)
  1. TEMODAR [Suspect]
     Indication: BRAIN NEOPLASM
     Dosage: 140 MG, QD
     Route: 048
     Dates: start: 20120212, end: 201203
  2. KYTRIL [Concomitant]
     Dosage: UPDATE (19JUN2012): TABS 2?S

REACTIONS (2)
  - Urinary retention [Unknown]
  - Constipation [Recovering/Resolving]
